FAERS Safety Report 9884034 (Version 1)
Quarter: 2014Q1

REPORT INFORMATION
  Report Type: Spontaneous
  Country: US (occurrence: US)
  Receive Date: 20140210
  Receipt Date: 20140210
  Transmission Date: 20141002
  Serious: No
  Sender: FDA-Public Use
  Company Number: US-ALLERGAN-1316812US

PATIENT
  Age: 26 Year
  Sex: Female

DRUGS (2)
  1. BOTOX [Suspect]
     Indication: HYPERHIDROSIS
     Dosage: 40 UNITS, SINGLE
     Dates: start: 20131010, end: 20131010
  2. BOTOX [Suspect]
     Dosage: UNK, SINGLE
     Dates: start: 20130910, end: 20130910

REACTIONS (3)
  - Drug ineffective [Unknown]
  - Injection site pain [Recovered/Resolved]
  - Pain in extremity [Recovered/Resolved]
